FAERS Safety Report 6792937-3 (Version None)
Quarter: 2010Q2

REPORT INFORMATION
  Report Type: 
  Country: None (occurrence: None)
  Receive Date: 20100624
  Receipt Date: 20081129
  Transmission Date: 20101027
  Serious: No
  Sender: FDA-Public Use
  Company Number: US-PFIZER INC-2008085120

PATIENT
  Sex: Female

DRUGS (3)
  1. GEODON [Suspect]
  2. CELEXA [Suspect]
  3. ATIVAN [Concomitant]

REACTIONS (3)
  - DRUG WITHDRAWAL SYNDROME [None]
  - MOTION SICKNESS [None]
  - VOMITING [None]
